FAERS Safety Report 5651812-8 (Version None)
Quarter: 2008Q1

REPORT INFORMATION
  Report Type: 
  Country: None (occurrence: None)
  Receive Date: 20080304
  Receipt Date: 20080225
  Transmission Date: 20080703
  Serious: Yes (Death, Hospitalization)
  Sender: FDA-Public Use
  Company Number: 2007SP008136

PATIENT
  Age: 79 Year
  Sex: Female
  Weight: 78.9 kg

DRUGS (4)
  1. TEMODAR [Suspect]
     Indication: GLIOBLASTOMA MULTIFORME
     Dosage: 75 MG/M2;QD;PO; 150 MG/M2;QD;PO;200 MG/M2;QD;PO
     Route: 048
     Dates: start: 20061108, end: 20061201
  2. TEMODAR [Suspect]
     Indication: GLIOBLASTOMA MULTIFORME
     Dosage: 75 MG/M2;QD;PO; 150 MG/M2;QD;PO;200 MG/M2;QD;PO
     Route: 048
     Dates: start: 20070120, end: 20070124
  3. TEMODAR [Suspect]
     Indication: GLIOBLASTOMA MULTIFORME
     Dosage: 75 MG/M2;QD;PO; 150 MG/M2;QD;PO;200 MG/M2;QD;PO
     Route: 048
     Dates: start: 20070217, end: 20070221
  4. VITAMIN CAP [Concomitant]

REACTIONS (5)
  - ARRHYTHMIA SUPRAVENTRICULAR [None]
  - ATRIAL FIBRILLATION [None]
  - BONE MARROW FAILURE [None]
  - SICK SINUS SYNDROME [None]
  - URINARY TRACT INFECTION [None]
